FAERS Safety Report 14336847 (Version 2)
Quarter: 2018Q1

REPORT INFORMATION
  Report Type: Spontaneous
  Country: US (occurrence: US)
  Receive Date: 20171229
  Receipt Date: 20180201
  Transmission Date: 20180509
  Serious: Yes (Death, Hospitalization)
  Sender: FDA-Public Use
  Company Number: US-PINNACLE BIOLOGICS BV-2017-CLI-000017

PATIENT
  Sex: Male

DRUGS (1)
  1. PHOTOFRIN [Suspect]
     Active Substance: PORFIMER SODIUM
     Indication: OESOPHAGEAL CARCINOMA
     Dosage: UNK
     Dates: start: 201712

REACTIONS (2)
  - Oesophageal rupture [Unknown]
  - Death [Fatal]
